FAERS Safety Report 14668335 (Version 2)
Quarter: 2018Q3

REPORT INFORMATION
  Report Type: Spontaneous
  Country: BR (occurrence: BR)
  Receive Date: 20180322
  Receipt Date: 20180709
  Transmission Date: 20181010
  Serious: Yes (Other)
  Sender: FDA-Public Use
  Company Number: BR-ABBVIE-18P-020-2296718-00

PATIENT
  Sex: Male

DRUGS (4)
  1. DEPAKENE [Suspect]
     Active Substance: VALPROIC ACID
     Route: 065
  2. KEPPRA [Concomitant]
     Active Substance: LEVETIRACETAM
     Indication: PETIT MAL EPILEPSY
     Dates: start: 201801, end: 201803
  3. DEPAKENE [Suspect]
     Active Substance: VALPROIC ACID
     Indication: PETIT MAL EPILEPSY
     Dosage: DURATION: 15 DAYS
     Route: 065
  4. DEPAKENE [Suspect]
     Active Substance: VALPROIC ACID
     Dosage: DURATION: 15 DAYS
     Route: 065

REACTIONS (2)
  - Product use issue [Unknown]
  - Petit mal epilepsy [Unknown]
